FAERS Safety Report 16065498 (Version 1)
Quarter: 2019Q1

REPORT INFORMATION
  Report Type: Report from Study
  Country: None (occurrence: US)
  Receive Date: 20190313
  Receipt Date: 20190313
  Transmission Date: 20190418
  Serious: Yes (Other)
  Sender: FDA-Public Use
  Company Number: US-ABBVIE-19K-163-2649025-00

PATIENT
  Age: 59 Year
  Sex: Female
  Weight: 93.07 kg

DRUGS (11)
  1. HUMIRA [Suspect]
     Active Substance: ADALIMUMAB
     Route: 058
     Dates: start: 201901, end: 20190216
  2. PROGESTERONE. [Concomitant]
     Active Substance: PROGESTERONE
     Indication: MENOPAUSE
  3. CALCIUM [Concomitant]
     Active Substance: CALCIUM
     Indication: PRODUCT USED FOR UNKNOWN INDICATION
  4. FAMOTIDINE. [Concomitant]
     Active Substance: FAMOTIDINE
     Indication: GASTROOESOPHAGEAL REFLUX DISEASE
  5. ESTRACE [Concomitant]
     Active Substance: ESTRADIOL
     Indication: MENOPAUSE
  6. NATURE-THROID [Concomitant]
     Active Substance: THYROID, PORCINE
     Indication: HYPOTHYROIDISM
  7. AMLODIPINE [Concomitant]
     Active Substance: AMLODIPINE BESYLATE
     Indication: HYPERTENSION
  8. LISINOPRIL. [Concomitant]
     Active Substance: LISINOPRIL
     Indication: HYPERTENSION
  9. MELATONIN [Concomitant]
     Active Substance: MELATONIN
     Indication: SLEEP DISORDER
  10. HUMIRA [Suspect]
     Active Substance: ADALIMUMAB
     Indication: PSORIATIC ARTHROPATHY
     Route: 058
     Dates: start: 2018, end: 201812
  11. DICYCLOMINE [Concomitant]
     Active Substance: DICYCLOMINE HYDROCHLORIDE
     Indication: IRRITABLE BOWEL SYNDROME

REACTIONS (7)
  - Arthralgia [Unknown]
  - Meniscus injury [Recovering/Resolving]
  - Fall [Recovered/Resolved]
  - Cystitis [Not Recovered/Not Resolved]
  - Bronchitis [Recovering/Resolving]
  - Dehydration [Unknown]
  - Fall [Recovered/Resolved]

NARRATIVE: CASE EVENT DATE: 201811
